FAERS Safety Report 25226591 (Version 1)
Quarter: 2025Q2

REPORT INFORMATION
  Report Type: Report from Study
  Country: CO (occurrence: CO)
  Receive Date: 20250422
  Receipt Date: 20250422
  Transmission Date: 20250716
  Serious: Yes (Other)
  Sender: JOHNSON AND JOHNSON
  Company Number: CO-JNJFOC-20250383509

PATIENT
  Age: 51 Year
  Sex: Female
  Weight: 104 kg

DRUGS (4)
  1. SIMPONI [Suspect]
     Active Substance: GOLIMUMAB
     Indication: Rheumatoid arthritis
     Route: 058
     Dates: start: 20230228
  2. ETORICOXIB [Concomitant]
     Active Substance: ETORICOXIB
  3. SULFASALAZINE [Concomitant]
     Active Substance: SULFASALAZINE
  4. CALCITRIOL [Concomitant]
     Active Substance: CALCITRIOL

REACTIONS (1)
  - Breast cancer [Unknown]
